FAERS Safety Report 4613915-6 (Version None)
Quarter: 2005Q1

REPORT INFORMATION
  Report Type: 
  Country: None (occurrence: None)
  Receive Date: 20050321
  Receipt Date: 20050308
  Transmission Date: 20050727
  Serious: Yes (Other)
  Sender: FDA-Public Use
  Company Number: CZ-GLAXOSMITHKLINE-B0374837A

PATIENT
  Age: 31 Year

DRUGS (1)
  1. AUGMENTIN '125' [Suspect]
     Indication: DRUG USE FOR UNKNOWN INDICATION
     Dosage: 2G PER DAY
     Route: 048

REACTIONS (7)
  - ERYTHEMA [None]
  - OEDEMA MUCOSAL [None]
  - OROPHARYNGEAL SWELLING [None]
  - PRURITUS [None]
  - PRURITUS GENERALISED [None]
  - SWELLING FACE [None]
  - SWOLLEN TONGUE [None]
